FAERS Safety Report 5276748-6 (Version None)
Quarter: 2007Q1

REPORT INFORMATION
  Report Type: 
  Country: None (occurrence: None)
  Receive Date: 20070327
  Receipt Date: 20070315
  Transmission Date: 20070707
  Serious: Yes (Death)
  Sender: FDA-Public Use
  Company Number: US-JNJFOC-20070304962

PATIENT
  Sex: Male

DRUGS (1)
  1. PROPULSID [Suspect]
     Indication: GASTROOESOPHAGEAL REFLUX DISEASE
     Route: 065

REACTIONS (4)
  - CARDIAC DEATH [None]
  - COLD SWEAT [None]
  - DYSPEPSIA [None]
  - DYSPHAGIA [None]
